FAERS Safety Report 5924999-7 (Version None)
Quarter: 2008Q3

REPORT INFORMATION
  Report Type: 
  Country: None (occurrence: None)
  Receive Date: 20080909
  Receipt Date: 20080407
  Transmission Date: 20090109
  Serious: Yes (Other)
  Sender: FDA-Public Use
  Company Number: 163-20785-08040649

PATIENT
  Age: 70 Year
  Sex: Female

DRUGS (9)
  1. THALOMID [Suspect]
     Indication: MULTIPLE MYELOMA
     Dosage: 200 MG, QD, ORAL
     Route: 048
     Dates: start: 20070101, end: 20080215
  2. AMLODIPINE BESYLATE [Concomitant]
  3. FUROSEMIDE [Concomitant]
  4. NEURONTIN [Concomitant]
  5. NYSTATIN POWDER (NYSTATIN) (POWDER) [Concomitant]
  6. PREVACID [Concomitant]
  7. PROCHLORPERAZINE MALEATE (PROCHLORPERAZINE MALEATE) [Concomitant]
  8. TOPROL-XL [Concomitant]
  9. WARFARIN SODIUM [Concomitant]

REACTIONS (1)
  - NEUROPATHY PERIPHERAL [None]
